FAERS Safety Report 13960283 (Version 1)
Quarter: 2017Q3

REPORT INFORMATION
  Report Type: Spontaneous
  Country: DK (occurrence: DK)
  Receive Date: 20170912
  Receipt Date: 20170912
  Transmission Date: 20171128
  Serious: Yes (Hospitalization)
  Sender: FDA-Public Use
  Company Number: DK-LEO PHARMA-304548

PATIENT
  Age: 67 Year
  Sex: Male
  Weight: 70 kg

DRUGS (2)
  1. PICATO [Suspect]
     Active Substance: INGENOL MEBUTATE
     Indication: PRECANCEROUS SKIN LESION
     Dosage: DOSE: 1 APPLICATION PER DAY FOR 3 DAYS. ?STRENGTH: 150 MG.
     Route: 002
     Dates: start: 20170627, end: 20170627
  2. SIMPONI [Concomitant]
     Active Substance: GOLIMUMAB
     Indication: PSORIASIS
     Dates: start: 20160910

REACTIONS (3)
  - Burn oral cavity [Recovering/Resolving]
  - Oral discomfort [Recovering/Resolving]
  - Incorrect drug administration duration [Unknown]

NARRATIVE: CASE EVENT DATE: 20170627
